FAERS Safety Report 13502251 (Version 1)
Quarter: 2017Q2

REPORT INFORMATION
  Report Type: Spontaneous
  Country: JP (occurrence: JP)
  Receive Date: 20170502
  Receipt Date: 20170502
  Transmission Date: 20170830
  Serious: Yes (Other)
  Sender: FDA-Public Use
  Company Number: JP-ACCORD-051016

PATIENT
  Age: 69 Year
  Sex: Male

DRUGS (5)
  1. ACETYLSALICYLIC ACID [Suspect]
     Active Substance: ASPIRIN
     Indication: ANTIPLATELET THERAPY
  2. BENIDIPINE [Concomitant]
     Active Substance: BENIDIPINE
  3. CLOPIDOGREL [Suspect]
     Active Substance: CLOPIDOGREL BISULFATE
     Indication: ANTIPLATELET THERAPY
  4. NICORANDIL [Concomitant]
     Active Substance: NICORANDIL
  5. CARVEDILOL/CARVEDILOL HYDROCHLODRIDE [Concomitant]
     Indication: ARTERIOSPASM CORONARY

REACTIONS (2)
  - Angina pectoris [Recovered/Resolved]
  - Vascular stent thrombosis [Recovered/Resolved]
